FAERS Safety Report 4732572-1 (Version None)
Quarter: 2005Q3

REPORT INFORMATION
  Report Type: 
  Country: None (occurrence: None)
  Receive Date: 20050801
  Receipt Date: 20050718
  Transmission Date: 20060218
  Serious: Yes (Other)
  Sender: FDA-Public Use
  Company Number: 2005086309

PATIENT
  Age: 68 Year
  Sex: Female
  Weight: 72.5755 kg

DRUGS (2)
  1. BEXTRA [Suspect]
     Indication: PAIN
     Dosage: 20 MG (10 MG, 2 IN 1 D), ORAL
     Route: 048
     Dates: start: 20041001
  2. FUROSEMIDE (FUROSEMIDE) [Concomitant]

REACTIONS (6)
  - ADVERSE EVENT [None]
  - DYSPNOEA [None]
  - LUNG DISORDER [None]
  - MALAISE [None]
  - PRURITUS [None]
  - WEIGHT DECREASED [None]
